FAERS Safety Report 16929715 (Version 1)
Quarter: 2019Q4

REPORT INFORMATION
  Report Type: Spontaneous
  Country: ES (occurrence: ES)
  Receive Date: 20191017
  Receipt Date: 20191017
  Transmission Date: 20200122
  Serious: Yes (Life-Threatening, Hospitalization, Other)
  Sender: FDA-Public Use
  Company Number: ES-PFIZER INC-2019445159

PATIENT
  Age: 47 Year
  Sex: Female

DRUGS (9)
  1. CYCLOPHOSPHAMIDE. [Suspect]
     Active Substance: CYCLOPHOSPHAMIDE
     Indication: PRIMARY AMYLOIDOSIS
     Dosage: UNK, WEEKLY
  2. PROPOFOL. [Suspect]
     Active Substance: PROPOFOL
     Indication: ANALGESIC THERAPY
     Dosage: 2 %, 1X/DAY (1 SCH/14H)
  3. DOXYCYCLINE HYCLATE. [Suspect]
     Active Substance: DOXYCYCLINE HYCLATE
     Indication: PRIMARY AMYLOIDOSIS
     Dosage: UNK, WEEKLY
  4. ACTOCORTIN [HYDROCORTISONE SODIUM PHOSPHATE] [Suspect]
     Active Substance: HYDROCORTISONE SODIUM PHOSPHATE
     Indication: PRIMARY AMYLOIDOSIS
     Dosage: 20 MG, 1X/DAY
  5. DEXAMETHASONE. [Suspect]
     Active Substance: DEXAMETHASONE
     Indication: PRIMARY AMYLOIDOSIS
     Dosage: UNK, WEEKLY
  6. ACICLOVIR [Suspect]
     Active Substance: ACYCLOVIR
     Indication: PRIMARY AMYLOIDOSIS
     Dosage: 250 MG, 1X/DAY
  7. AMOXICILLIN/CLAVULANIC ACID [Suspect]
     Active Substance: AMOXICILLIN\CLAVULANIC ACID
     Indication: PRIMARY AMYLOIDOSIS
     Dosage: UNK, 3X/DAY, EVERY 8 HOURS (875/125)
  8. VELCADE [Suspect]
     Active Substance: BORTEZOMIB
     Indication: PRIMARY AMYLOIDOSIS
     Dosage: UNK, WEEKLY
  9. SEPTRIN [Suspect]
     Active Substance: SULFAMETHOXAZOLE\TRIMETHOPRIM
     Indication: PRIMARY AMYLOIDOSIS
     Dosage: UNK, 2X/DAY (1 , 800/160)

REACTIONS (7)
  - Off label use [Unknown]
  - Product use in unapproved indication [Unknown]
  - Biliary colic [Unknown]
  - Hemiplegia [Unknown]
  - Seizure [Unknown]
  - Respiratory arrest [Unknown]
  - Pancreatitis [Unknown]
